FAERS Safety Report 15596388 (Version 3)
Quarter: 2019Q1

REPORT INFORMATION
  Report Type: Report from Study
  Country: None (occurrence: ES)
  Receive Date: 20181108
  Receipt Date: 20190123
  Transmission Date: 20190417
  Serious: Yes (Hospitalization, Other)
  Sender: FDA-Public Use
  Company Number: ES-ABBVIE-18S-144-2541372-00

PATIENT
  Age: 78 Year
  Sex: Male
  Weight: 54 kg

DRUGS (1)
  1. DUODOPA [Suspect]
     Active Substance: CARBIDOPA\LEVODOPA
     Indication: PARKINSON^S DISEASE
     Dosage: MD: 12 ML
     Route: 050
     Dates: start: 20171214

REACTIONS (13)
  - Balance disorder [Not Recovered/Not Resolved]
  - Cognitive disorder [Not Recovered/Not Resolved]
  - Mutism [Not Recovered/Not Resolved]
  - Fall [Recovered/Resolved]
  - Device issue [Recovered/Resolved]
  - Fall [Recovered/Resolved]
  - Disorientation [Recovered/Resolved]
  - Agitation [Recovered/Resolved]
  - Epilepsy [Recovered/Resolved]
  - On and off phenomenon [Not Recovered/Not Resolved]
  - Contusion [Recovering/Resolving]
  - Cerebral thrombosis [Recovered/Resolved]
  - Head injury [Recovered/Resolved]

NARRATIVE: CASE EVENT DATE: 20181028
